FAERS Safety Report 21416113 (Version 1)
Quarter: 2022Q4

REPORT INFORMATION
  Report Type: Spontaneous
  Country: US (occurrence: US)
  Receive Date: 20221006
  Receipt Date: 20221006
  Transmission Date: 20230113
  Serious: No
  Sender: FDA-Public Use
  Company Number: US-ALLERGAN-2134023US

PATIENT
  Age: 48 Year
  Sex: Female

DRUGS (3)
  1. VRAYLAR [Suspect]
     Active Substance: CARIPRAZINE
     Indication: Bipolar disorder
     Dosage: 4.5 MG, QPM
     Dates: start: 2021, end: 202109
  2. VRAYLAR [Suspect]
     Active Substance: CARIPRAZINE
     Indication: Hallucination, auditory
  3. METOPROLOL [Concomitant]
     Active Substance: METOPROLOL
     Indication: Diabetes mellitus

REACTIONS (1)
  - Product use in unapproved indication [Unknown]
